FAERS Safety Report 7545751-5 (Version None)
Quarter: 2011Q2

REPORT INFORMATION
  Report Type: 
  Country: None (occurrence: None)
  Receive Date: 20110614
  Receipt Date: 20110603
  Transmission Date: 20111010
  Serious: Yes (Hospitalization, Other)
  Sender: FDA-Public Use
  Company Number: US-JNJFOC-20110511501

PATIENT
  Sex: Female
  Weight: 58.06 kg

DRUGS (3)
  1. ELMIRON [Suspect]
     Route: 048
     Dates: start: 20000101, end: 20050101
  2. ELMIRON [Suspect]
     Indication: BLADDER DISORDER
     Route: 048
     Dates: start: 20050101
  3. ALL OTHER THERAPEUTICS [Concomitant]
     Route: 065

REACTIONS (8)
  - THINKING ABNORMAL [None]
  - MULTIPLE SCLEROSIS [None]
  - CLUSTER HEADACHE [None]
  - ADRENAL INSUFFICIENCY [None]
  - AUTOIMMUNE DISORDER [None]
  - FIBROMYALGIA [None]
  - PAIN [None]
  - ABNORMAL LOSS OF WEIGHT [None]
